FAERS Safety Report 8138023-1 (Version None)
Quarter: 2012Q1

REPORT INFORMATION
  Report Type: 
  Country: None (occurrence: None)
  Receive Date: 20120215
  Receipt Date: 20120209
  Transmission Date: 20120608
  Serious: Yes (Hospitalization, Other)
  Sender: FDA-Public Use
  Company Number: BR-PFIZER INC-2012035991

PATIENT
  Age: 88 Year
  Sex: Female

DRUGS (1)
  1. SUTENT [Suspect]
     Indication: RENAL CANCER METASTATIC
     Dosage: 50 MG, 1X/DAY
     Route: 048
     Dates: start: 20120202

REACTIONS (5)
  - PULMONARY OEDEMA [None]
  - CONSTIPATION [None]
  - URINE OUTPUT DECREASED [None]
  - DELIRIUM [None]
  - DIZZINESS [None]
